FAERS Safety Report 13829766 (Version 1)
Quarter: 2017Q3

REPORT INFORMATION
  Report Type: Spontaneous
  Country: JP (occurrence: JP)
  Receive Date: 20170803
  Receipt Date: 20170803
  Transmission Date: 20171127
  Serious: Yes (Death)
  Sender: FDA-Public Use
  Company Number: JP-EISAI MEDICAL RESEARCH-EC-2017-029699

PATIENT
  Sex: Female

DRUGS (1)
  1. HALAVEN [Suspect]
     Active Substance: ERIBULIN MESYLATE
     Indication: UTERINE LEIOMYOSARCOMA
     Route: 041
     Dates: start: 20170616, end: 20170707

REACTIONS (2)
  - Malignant neoplasm progression [Fatal]
  - Anaemia [Unknown]

NARRATIVE: CASE EVENT DATE: 2017
